FAERS Safety Report 14011706 (Version 1)
Quarter: 2017Q3

REPORT INFORMATION
  Report Type: Spontaneous
  Country: OM (occurrence: OM)
  Receive Date: 20170926
  Receipt Date: 20170926
  Transmission Date: 20171128
  Serious: Yes (Hospitalization, Other)
  Sender: FDA-Public Use
  Company Number: OM-009507513-1709OMN010284

PATIENT
  Age: 70 Year
  Sex: Male

DRUGS (1)
  1. BETAMETHASONE DIPROPIONATE (+) BETAMETHASONE SODIUM PHOSPHATE [Suspect]
     Active Substance: BETAMETHASONE DIPROPIONATE\BETAMETHASONE SODIUM PHOSPHATE

REACTIONS (3)
  - Self-medication [Recovered/Resolved]
  - Adrenal insufficiency [Unknown]
  - Kaposi^s sarcoma [Recovered/Resolved]
